FAERS Safety Report 10467868 (Version 1)
Quarter: 2014Q3

REPORT INFORMATION
  Report Type: Spontaneous
  Country: CH (occurrence: CH)
  Receive Date: 20140922
  Receipt Date: 20140922
  Transmission Date: 20150326
  Serious: Yes (Death, Hospitalization)
  Sender: FDA-Public Use
  Company Number: PHHY2014CH121286

PATIENT
  Sex: Female
  Weight: 40 kg

DRUGS (7)
  1. EUTHYROX [Concomitant]
     Active Substance: LEVOTHYROXINE SODIUM
     Indication: BASEDOW^S DISEASE
     Dosage: 0.05 MG, QD
     Route: 048
  2. NOVALGIN [Interacting]
     Active Substance: METAMIZOLE SODIUM
     Dosage: UNK UKN, UNK
     Route: 048
     Dates: start: 201407, end: 20140730
  3. ZINK VERLA [Concomitant]
     Dosage: 20 MG, QD
     Route: 048
  4. DAFALGAN [Interacting]
     Active Substance: ACETAMINOPHEN
     Dosage: 1 G, QID
     Route: 048
     Dates: start: 2014
  5. MOVICOL [Concomitant]
     Active Substance: POLYETHYLENE GLYCOL 3350\POTASSIUM CHLORIDE\SODIUM BICARBONATE\SODIUM CHLORIDE
     Dosage: 2 BTL (UNSPECIFIED) PER DAY
     Route: 048
  6. EXFORGE [Suspect]
     Active Substance: AMLODIPINE BESYLATE\VALSARTAN
     Indication: HYPERTENSION
     Dosage: 1 DF (160 MG VALS/ 5 MG AMLO), QD
     Route: 048
  7. KALCIPOS D3 [Concomitant]
     Dosage: 1 DF (500/800 WITH UNSPECIFIESD UNIT), DAILY
     Route: 048

REACTIONS (6)
  - Agranulocytosis [Fatal]
  - Tonsillitis [Unknown]
  - Pneumonia [Fatal]
  - Oropharyngeal pain [Unknown]
  - Oropharyngeal candidiasis [Unknown]
  - Respiratory failure [Fatal]
